FAERS Safety Report 19571012 (Version 1)
Quarter: 2021Q3

REPORT INFORMATION
  Report Type: Report from Study
  Country: MX (occurrence: MX)
  Receive Date: 20210716
  Receipt Date: 20210716
  Transmission Date: 20211014
  Serious: Yes (Death)
  Sender: FDA-Public Use
  Company Number: MX-UCBSA-2021034193

PATIENT
  Age: 83 Year
  Sex: Male
  Weight: 45 kg

DRUGS (5)
  1. ROTIGOTINE [Suspect]
     Active Substance: ROTIGOTINE
     Indication: PARKINSON^S DISEASE
     Dosage: 4 MILLIGRAM, ONCE DAILY (QD)
     Route: 062
  2. QUETIAPINE. [Concomitant]
     Active Substance: QUETIAPINE
     Indication: ABNORMAL BEHAVIOUR
  3. LEVODOPA/CARBIDOPA [Concomitant]
     Active Substance: CARBIDOPA\LEVODOPA
     Indication: PARKINSON^S DISEASE
  4. RASAGILINE. [Concomitant]
     Active Substance: RASAGILINE
     Indication: PARKINSON^S DISEASE
  5. ROTIGOTINE [Suspect]
     Active Substance: ROTIGOTINE
     Dosage: 0.5 PATCH OF 4MG , ONCE DAILY (QD)
     Dates: end: 20210121

REACTIONS (6)
  - Anxiety [Unknown]
  - Skin mass [Unknown]
  - Aggression [Unknown]
  - Off label use [Unknown]
  - Asthenia [Recovered/Resolved]
  - Myocardial infarction [Fatal]

NARRATIVE: CASE EVENT DATE: 20210121
